FAERS Safety Report 7712882-6 (Version None)
Quarter: 2011Q3

REPORT INFORMATION
  Report Type: 
  Country: None (occurrence: None)
  Receive Date: 20110826
  Receipt Date: 20110817
  Transmission Date: 20111222
  Serious: Yes (Other)
  Sender: FDA-Public Use
  Company Number: PHEH2005US05835

PATIENT
  Sex: Male

DRUGS (24)
  1. COZAAR [Concomitant]
  2. MULTI-VITAMINS [Concomitant]
  3. LOMOTIL [Concomitant]
     Dosage: 1 DF, QID
     Route: 048
  4. ALLEGRA D 24 HOUR [Concomitant]
     Dosage: 1 DF, QD
     Route: 048
  5. CLARITIN [Concomitant]
  6. GEMFIBROZIL [Concomitant]
     Dosage: 600 MG, BID
  7. ALPHA LIPOIC ACID [Concomitant]
     Dosage: 100 MG, TID
  8. TOPROL-XL [Concomitant]
     Dosage: 1 DF, QHS
     Route: 048
  9. INTERFERON [Concomitant]
  10. DESONIDE [Concomitant]
  11. RANITIDINE [Concomitant]
     Dosage: 1 DF, BID
     Route: 048
  12. SIMAVASTATIN [Concomitant]
     Dosage: 0.5 DF, QHS
     Route: 048
  13. B-50 [Concomitant]
  14. LASIX [Concomitant]
     Dosage: 1 DF, QD
     Route: 048
  15. PROTONIX [Concomitant]
     Dosage: 1 DF, BID
     Route: 048
  16. CELEBREX [Concomitant]
  17. ASPIRIN [Concomitant]
     Dosage: 325 MG, QD
     Route: 048
  18. SYNTHROID [Concomitant]
     Dosage: 1 DF, QD
     Route: 048
  19. ZOMETA [Suspect]
     Indication: MULTIPLE MYELOMA
     Dosage: 4 MG, QMO
     Dates: start: 20031021, end: 20050522
  20. PAXIL [Concomitant]
  21. TESTOSTERONE [Concomitant]
     Dosage: 300 MG, TIW
  22. GLUCOSAMINE SULFATE [Concomitant]
  23. NORCO [Concomitant]
     Dosage: 325 MG PARACETAMOL AND 7.5 MG HYDROCODONE
     Route: 048
  24. PAROXETINE HCL [Concomitant]
     Dosage: 0.5 DF, QD
     Route: 048

REACTIONS (18)
  - EXOSTOSIS [None]
  - PAIN [None]
  - INTERVERTEBRAL DISC COMPRESSION [None]
  - DIARRHOEA [None]
  - BACK PAIN [None]
  - AORTIC ARTERIOSCLEROSIS [None]
  - OSTEONECROSIS OF JAW [None]
  - EXPOSED BONE IN JAW [None]
  - GINGIVAL ULCERATION [None]
  - DIZZINESS [None]
  - TRANSIENT ISCHAEMIC ATTACK [None]
  - TOOTH DISORDER [None]
  - SPINAL OSTEOARTHRITIS [None]
  - OSTEOARTHRITIS [None]
  - BONE DENSITY DECREASED [None]
  - CAROTID ARTERY STENOSIS [None]
  - PULMONARY GRANULOMA [None]
  - ORAL INFECTION [None]
